FAERS Safety Report 18610002 (Version 1)
Quarter: 2020Q4

REPORT INFORMATION
  Report Type: Spontaneous
  Country: US (occurrence: US)
  Receive Date: 20201211
  Receipt Date: 20201211
  Transmission Date: 20210114
  Serious: Yes (Death)
  Sender: FDA-Public Use
  Company Number: None

PATIENT
  Age: 73 Year
  Sex: Male

DRUGS (18)
  1. LEVEMIR FLEXTOUCH PEN [Concomitant]
  2. FERROUS SULFATE. [Concomitant]
     Active Substance: FERROUS SULFATE
  3. CALCIUM [Concomitant]
     Active Substance: CALCIUM
  4. BACLOFEN. [Concomitant]
     Active Substance: BACLOFEN
  5. FINASTERIDE. [Concomitant]
     Active Substance: FINASTERIDE
  6. ATORVASTATIN [Concomitant]
     Active Substance: ATORVASTATIN
  7. CARVEDILOL. [Concomitant]
     Active Substance: CARVEDILOL
  8. IMODIUM [Concomitant]
     Active Substance: LOPERAMIDE HYDROCHLORIDE
  9. VITAMIN D [Concomitant]
     Active Substance: VITAMIN D NOS
  10. CAPECITABINE 500MG [Suspect]
     Active Substance: CAPECITABINE
     Indication: LUNG NEOPLASM MALIGNANT
     Route: 048
     Dates: start: 20191217, end: 20201206
  11. DULOXETINE. [Concomitant]
     Active Substance: DULOXETINE
  12. DULOXETINE DR [Concomitant]
     Active Substance: DULOXETINE
  13. TAMSULOSIN [Concomitant]
     Active Substance: TAMSULOSIN
  14. CLONIDINE. [Concomitant]
     Active Substance: CLONIDINE
  15. ALLOPURINOL. [Concomitant]
     Active Substance: ALLOPURINOL
  16. VITAMIN B12 [Concomitant]
     Active Substance: CYANOCOBALAMIN
  17. LISINOPRIL. [Concomitant]
     Active Substance: LISINOPRIL
  18. AMLODIPINE [Concomitant]
     Active Substance: AMLODIPINE BESYLATE

REACTIONS (1)
  - Death [None]

NARRATIVE: CASE EVENT DATE: 20201206
